FAERS Safety Report 8174031-2 (Version None)
Quarter: 2012Q1

REPORT INFORMATION
  Report Type: 
  Country: None (occurrence: None)
  Receive Date: 20120229
  Receipt Date: 20120220
  Transmission Date: 20120608
  Serious: Yes (Other)
  Sender: FDA-Public Use
  Company Number: ES-ROCHE-1042071

PATIENT
  Sex: Male

DRUGS (2)
  1. ACTEMRA [Suspect]
     Indication: JUVENILE ARTHRITIS
     Route: 065
     Dates: start: 20110120, end: 20110317
  2. OMEPRAZOLE [Concomitant]

REACTIONS (1)
  - NODULAR REGENERATIVE HYPERPLASIA [None]
